FAERS Safety Report 5859659-4 (Version None)
Quarter: 2008Q3

REPORT INFORMATION
  Report Type: 
  Country: None (occurrence: None)
  Receive Date: 20080827
  Receipt Date: 20080818
  Transmission Date: 20090109
  Serious: Yes (Hospitalization)
  Sender: FDA-Public Use
  Company Number: RO-JNJFOC-20080804326

PATIENT
  Sex: Female
  Weight: 59 kg

DRUGS (1)
  1. RISPOLEPT CONSTA [Suspect]
     Indication: SCHIZOAFFECTIVE DISORDER
     Route: 030

REACTIONS (4)
  - ATRIAL TACHYCARDIA [None]
  - MALAISE [None]
  - PALPITATIONS [None]
  - SUFFOCATION FEELING [None]
